FAERS Safety Report 4311911-X (Version None)
Quarter: 2004Q1

REPORT INFORMATION
  Report Type: 
  Country: None (occurrence: None)
  Receive Date: 20040305
  Receipt Date: 20040123
  Transmission Date: 20041129
  Serious: Yes (Other)
  Sender: FDA-Public Use
  Company Number: PHRM2004FR00651

PATIENT
  Age: 62 Year
  Sex: Female

DRUGS (5)
  1. LAMISIL [Suspect]
     Indication: NAIL TINEA
     Dosage: 250 MG, QD
     Route: 048
     Dates: start: 20030107, end: 20030205
  2. PROVAMES [Concomitant]
     Dosage: UNK, UNK
     Route: 048
     Dates: end: 20030501
  3. XANAX [Concomitant]
     Dosage: UNK, UNK
     Route: 048
     Dates: end: 20030501
  4. TOPREC [Concomitant]
     Dosage: UNK, UNK
     Route: 048
     Dates: end: 20030501
  5. SEGLOR [Concomitant]
     Dosage: UNK, UNK
     Route: 048
     Dates: end: 20030501

REACTIONS (2)
  - LYMPHOCYTE COUNT DECREASED [None]
  - NEUTROPENIA [None]
